FAERS Safety Report 14842205 (Version 2)
Quarter: 2018Q4

REPORT INFORMATION
  Report Type: Spontaneous
  Country: FR (occurrence: FR)
  Receive Date: 20180503
  Receipt Date: 20181026
  Transmission Date: 20190204
  Serious: Yes (Hospitalization)
  Sender: FDA-Public Use
  Company Number: FR-MERCK KGAA-2047102

PATIENT
  Age: 56 Year
  Sex: Female

DRUGS (1)
  1. EUTHYROX [Suspect]
     Active Substance: LEVOTHYROXINE SODIUM
     Indication: AUTOIMMUNE THYROIDITIS

REACTIONS (30)
  - Abdominal hernia [None]
  - Fatigue [None]
  - Visual impairment [None]
  - Nausea [None]
  - Disturbance in attention [None]
  - Fibrin D dimer increased [None]
  - Weight increased [None]
  - Blood thyroid stimulating hormone increased [Recovered/Resolved]
  - Memory impairment [None]
  - General physical health deterioration [None]
  - Social avoidant behaviour [None]
  - Asthenia [None]
  - Abdominal pain [None]
  - Neutrophil count increased [Recovered/Resolved]
  - Mean platelet volume increased [Not Recovered/Not Resolved]
  - C-reactive protein increased [Recovered/Resolved]
  - Loss of personal independence in daily activities [None]
  - Headache [None]
  - Vomiting [None]
  - Muscle spasms [None]
  - Dizziness [None]
  - Blood thyroid stimulating hormone decreased [None]
  - Vertigo [None]
  - Chest discomfort [None]
  - Aphasia [None]
  - Dysstasia [None]
  - Thyroxine free increased [None]
  - Blood 1,25-dihydroxycholecalciferol decreased [None]
  - Lymphocyte count decreased [Recovered/Resolved]
  - Anxiety [None]

NARRATIVE: CASE EVENT DATE: 20170823
